FAERS Safety Report 6695449-0 (Version None)
Quarter: 2010Q2

REPORT INFORMATION
  Report Type: 
  Country: None (occurrence: None)
  Receive Date: 20100422
  Receipt Date: 20100422
  Transmission Date: 20101027
  Serious: No
  Sender: FDA-Public Use
  Company Number: None

PATIENT
  Sex: Female
  Weight: 54.8852 kg

DRUGS (1)
  1. GLUCOTROL XL [Suspect]
     Indication: TYPE 2 DIABETES MELLITUS
     Dosage: 5MG PO BID
     Route: 048
     Dates: start: 20030601, end: 20040201

REACTIONS (3)
  - DIABETES MELLITUS INADEQUATE CONTROL [None]
  - DRUG INEFFECTIVE [None]
  - PRODUCT SUBSTITUTION ISSUE [None]
